FAERS Safety Report 4654584-9 (Version None)
Quarter: 2005Q2

REPORT INFORMATION
  Report Type: 
  Country: None (occurrence: None)
  Receive Date: 20050504
  Receipt Date: 20050504
  Transmission Date: 20051028
  Serious: Yes (Hospitalization)
  Sender: FDA-Public Use
  Company Number: None

PATIENT
  Age: 75 Year
  Sex: Male
  Weight: 100 kg

DRUGS (9)
  1. WARFARIN SODIUM [Suspect]
     Indication: CORONARY ARTERY DISEASE
     Dates: start: 20040101, end: 20040928
  2. WARFARIN SODIUM [Suspect]
     Indication: MYOCARDIAL INFARCTION
     Dates: start: 20040101, end: 20040928
  3. CLOPIDOGREL BISULFATE [Suspect]
  4. HYDRAZALINE [Concomitant]
  5. COREG [Concomitant]
  6. FUROSEMIDE [Concomitant]
  7. GLIPIZIDE [Concomitant]
  8. ATORVASTATIN CALCIUM [Concomitant]
  9. ASPIRIN [Concomitant]

REACTIONS (7)
  - CHEST PAIN [None]
  - FAECES DISCOLOURED [None]
  - GASTRIC ULCER [None]
  - GASTRITIS EROSIVE [None]
  - HAEMATOCRIT DECREASED [None]
  - HAEMOGLOBIN DECREASED [None]
  - INTERNATIONAL NORMALISED RATIO INCREASED [None]
